FAERS Safety Report 5674211-1 (Version None)
Quarter: 2008Q1

REPORT INFORMATION
  Report Type: 
  Country: None (occurrence: None)
  Receive Date: 20080320
  Receipt Date: 20080311
  Transmission Date: 20080703
  Serious: Yes (Life-Threatening, Hospitalization)
  Sender: FDA-Public Use
  Company Number: US-KINGPHARMUSA00001-K200800148

PATIENT

DRUGS (11)
  1. SEPTRA [Suspect]
     Indication: HIV INFECTION
     Dosage: 960 MG, THREE IN ONE WEEK
     Route: 048
     Dates: start: 19960101, end: 20080101
  2. MARAVIROC [Suspect]
     Indication: HIV INFECTION
     Dosage: 150 MG, BID
     Route: 048
     Dates: start: 20071215
  3. MARAVIROC [Suspect]
     Dates: start: 20080215
  4. TMC-114 [Suspect]
     Indication: HIV INFECTION
     Dosage: 600 MG, BID
     Route: 048
     Dates: start: 20071215, end: 20080101
  5. RITONAVIR [Concomitant]
     Route: 048
     Dates: start: 19970204
  6. RALTEGRAVIR [Concomitant]
     Route: 048
     Dates: start: 20071215
  7. LAMIVUDINE [Concomitant]
     Route: 048
     Dates: start: 19970207
  8. ATORVASTATIN CALCIUM [Concomitant]
     Route: 048
  9. OMACOR     /01403701/ [Concomitant]
     Route: 048
  10. MULTIVITAMIN    /00831701/ [Concomitant]
     Route: 048
  11. ASPIRIN [Concomitant]
     Route: 048

REACTIONS (3)
  - HOSPITALISATION [None]
  - STEVENS-JOHNSON SYNDROME [None]
  - URTICARIA [None]
